FAERS Safety Report 22597337 (Version 1)
Quarter: 2023Q2

REPORT INFORMATION
  Report Type: Other
  Country: CA (occurrence: CA)
  Receive Date: 20230614
  Receipt Date: 20230614
  Transmission Date: 20230721
  Serious: Yes (Disabling)
  Sender: FDA-Public Use
  Company Number: CA-CELLTRION INC.-2023CA011767

PATIENT

DRUGS (1)
  1. TRASTUZUMAB [Suspect]
     Active Substance: TRASTUZUMAB
     Indication: HER2 positive breast cancer
     Dosage: 483 MILLIGRAM, 1 EVERY 3 WEEKS
     Route: 042

REACTIONS (5)
  - Toxicity to various agents [Unknown]
  - Fatigue [Unknown]
  - Malaise [Unknown]
  - Weight decreased [Unknown]
  - Off label use [Unknown]
